FAERS Safety Report 6883706-4 (Version None)
Quarter: 2010Q3

REPORT INFORMATION
  Report Type: 
  Country: None (occurrence: None)
  Receive Date: 20100729
  Receipt Date: 20100723
  Transmission Date: 20110219
  Serious: Yes (Other)
  Sender: FDA-Public Use
  Company Number: A0872113A

PATIENT
  Age: 64 Year
  Sex: Male

DRUGS (3)
  1. ADVAIR DISKUS 100/50 [Suspect]
     Dosage: 1PUFF TWICE PER DAY
     Route: 055
     Dates: start: 20090301
  2. ALBUTEROL [Concomitant]
  3. MEDICATION FOR HIGH BLOOD PRESSURE [Concomitant]

REACTIONS (1)
  - CATARACT [None]
